FAERS Safety Report 9783404 (Version 2)
Quarter: 2014Q1

REPORT INFORMATION
  Report Type: Report from Study
  Country: US (occurrence: US)
  Receive Date: 20131226
  Receipt Date: 20140127
  Transmission Date: 20141002
  Serious: Yes (Hospitalization)
  Sender: FDA-Public Use
  Company Number: US-ACTELION-A-US2013-92618

PATIENT
  Age: 82 Year
  Sex: Female

DRUGS (4)
  1. TRACLEER [Suspect]
     Indication: PULMONARY ARTERIAL HYPERTENSION
     Dosage: 125 MG, UNK
     Route: 048
     Dates: start: 20070926
  2. TRACLEER [Suspect]
     Dosage: 62.5 MG, UNK
     Route: 048
     Dates: start: 20070626, end: 20070925
  3. SILDENAFIL [Concomitant]
  4. COUMADIN [Concomitant]

REACTIONS (2)
  - Multiple fractures [Recovering/Resolving]
  - Spinal laminectomy [Recovering/Resolving]
